FAERS Safety Report 5479634-1 (Version None)
Quarter: 2007Q4

REPORT INFORMATION
  Report Type: 
  Country: None (occurrence: None)
  Receive Date: 20071008
  Receipt Date: 20071002
  Transmission Date: 20080405
  Serious: Yes (Hospitalization)
  Sender: FDA-Public Use
  Company Number: A0685625A

PATIENT
  Age: 69 Year
  Sex: Female

DRUGS (4)
  1. COREG [Suspect]
     Indication: HYPERTENSION
     Dosage: 6.25MG TWICE PER DAY
     Route: 048
     Dates: start: 20060101
  2. GLUCOPHAGE [Concomitant]
  3. AMARYL [Concomitant]
  4. LOPID [Concomitant]

REACTIONS (2)
  - HAEMOGLOBIN DECREASED [None]
  - TACHYCARDIA [None]
